FAERS Safety Report 12810121 (Version 1)
Quarter: 2016Q4

REPORT INFORMATION
  Report Type: Spontaneous
  Country: US (occurrence: US)
  Receive Date: 20161004
  Receipt Date: 20161004
  Transmission Date: 20170207
  Serious: No
  Sender: FDA-Public Use
  Company Number: None

PATIENT
  Age: 60 Year
  Sex: Female

DRUGS (1)
  1. HUMIRA [Suspect]
     Active Substance: ADALIMUMAB
     Indication: RHEUMATOID ARTHRITIS
     Route: 058
     Dates: start: 20160313

REACTIONS (5)
  - Hypersensitivity [None]
  - Glossodynia [None]
  - Fatigue [None]
  - Tongue discolouration [None]
  - Bacterial infection [None]

NARRATIVE: CASE EVENT DATE: 20160916
